FAERS Safety Report 6521142-0 (Version None)
Quarter: 2009Q4

REPORT INFORMATION
  Report Type: 
  Country: None (occurrence: None)
  Receive Date: 20091222
  Receipt Date: 20091207
  Transmission Date: 20100525
  Serious: Yes (Hospitalization)
  Sender: FDA-Public Use
  Company Number: 2009SP040504

PATIENT
  Age: 21 Year
  Sex: Female
  Weight: 95.2554 kg

DRUGS (1)
  1. IMPLANON [Suspect]
     Indication: CONTRACEPTION
     Dosage: 1 DF
     Dates: start: 20080328, end: 20081206

REACTIONS (4)
  - APPLICATION SITE INFECTION [None]
  - DEHYDRATION [None]
  - INGROWN HAIR [None]
  - MEDICAL DEVICE SITE REACTION [None]
